FAERS Safety Report 10976852 (Version 59)
Quarter: 2019Q4

REPORT INFORMATION
  Report Type: Report from Study
  Country: CA (occurrence: CA)
  Receive Date: 20150401
  Receipt Date: 20191120
  Transmission Date: 20200122
  Serious: Yes (Hospitalization, Other)
  Sender: FDA-Public Use
  Company Number: CA-ROCHE-1125328

PATIENT
  Age: 64 Year
  Sex: Male
  Weight: 82 kg

DRUGS (24)
  1. ACTEMRA [Suspect]
     Active Substance: TOCILIZUMAB
     Route: 042
     Dates: start: 20140130
  2. ACTEMRA [Suspect]
     Active Substance: TOCILIZUMAB
     Route: 042
     Dates: start: 20140919
  3. ACTEMRA [Suspect]
     Active Substance: TOCILIZUMAB
     Route: 042
     Dates: start: 20140227, end: 20150129
  4. ACTEMRA [Suspect]
     Active Substance: TOCILIZUMAB
     Route: 042
     Dates: start: 20150129
  5. ACTEMRA [Suspect]
     Active Substance: TOCILIZUMAB
     Route: 042
     Dates: start: 20150226, end: 20180326
  6. ACTEMRA [Suspect]
     Active Substance: TOCILIZUMAB
     Route: 042
     Dates: start: 20180628
  7. AMLODIPINE [Suspect]
     Active Substance: AMLODIPINE BESYLATE
     Indication: PRODUCT USED FOR UNKNOWN INDICATION
     Route: 065
  8. PERINDOPRIL [Suspect]
     Active Substance: PERINDOPRIL
     Indication: PRODUCT USED FOR UNKNOWN INDICATION
     Route: 048
     Dates: start: 20160606
  9. PANTOLOC [PANTOPRAZOLE] [Concomitant]
     Active Substance: PANTOPRAZOLE SODIUM
  10. ACTEMRA [Suspect]
     Active Substance: TOCILIZUMAB
     Route: 042
     Dates: start: 20141204
  11. ACTEMRA [Suspect]
     Active Substance: TOCILIZUMAB
     Route: 042
     Dates: start: 20101223
  12. ACTEMRA [Suspect]
     Active Substance: TOCILIZUMAB
     Route: 042
     Dates: start: 20150823, end: 20190319
  13. ACTEMRA [Suspect]
     Active Substance: TOCILIZUMAB
     Route: 042
     Dates: start: 20190415, end: 20191023
  14. PREDNISONE. [Concomitant]
     Active Substance: PREDNISONE
  15. TYLENOL [Concomitant]
     Active Substance: ACETAMINOPHEN
  16. ACTEMRA [Suspect]
     Active Substance: TOCILIZUMAB
     Dosage: 89TH INFUSION
     Route: 042
     Dates: start: 20180208
  17. ACTEMRA [Suspect]
     Active Substance: TOCILIZUMAB
     Route: 042
     Dates: start: 20150226, end: 20180326
  18. SEREVENT DISKUS [Concomitant]
     Active Substance: SALMETEROL XINAFOATE
  19. ACTEMRA [Suspect]
     Active Substance: TOCILIZUMAB
     Indication: RHEUMATOID ARTHRITIS
     Route: 042
     Dates: start: 20101222, end: 20120802
  20. ACTEMRA [Suspect]
     Active Substance: TOCILIZUMAB
     Route: 042
     Dates: start: 20120830, end: 20140130
  21. SULFASALAZINE. [Concomitant]
     Active Substance: SULFASALAZINE
  22. ACTEMRA [Suspect]
     Active Substance: TOCILIZUMAB
     Route: 042
     Dates: start: 20141106
  23. ACTEMRA [Suspect]
     Active Substance: TOCILIZUMAB
     Dosage: ONGOING
     Route: 042
     Dates: start: 20190415
  24. ELAVIL [Concomitant]
     Active Substance: AMITRIPTYLINE HYDROCHLORIDE

REACTIONS (61)
  - Blood pressure increased [Unknown]
  - Pneumonia [Recovered/Resolved]
  - Hyperkeratosis [Not Recovered/Not Resolved]
  - Infusion related reaction [Unknown]
  - Joint stiffness [Not Recovered/Not Resolved]
  - Blood pressure systolic increased [Unknown]
  - Intentional product use issue [Unknown]
  - Heart rate decreased [Unknown]
  - Lung neoplasm [Unknown]
  - Precancerous skin lesion [Unknown]
  - Cough [Not Recovered/Not Resolved]
  - Musculoskeletal stiffness [Recovered/Resolved]
  - Lower respiratory tract congestion [Recovering/Resolving]
  - Procedural pain [Not Recovered/Not Resolved]
  - Heart rate decreased [Unknown]
  - Insomnia [Unknown]
  - Oedema peripheral [Unknown]
  - Weight decreased [Unknown]
  - Inflammation [Recovered/Resolved]
  - Pneumonia [Unknown]
  - Pain in extremity [Recovered/Resolved]
  - Weight increased [Not Recovered/Not Resolved]
  - Oxygen saturation decreased [Unknown]
  - Muscle disorder [Unknown]
  - Stress [Unknown]
  - Radius fracture [Unknown]
  - Epicondylitis [Unknown]
  - Blood pressure diastolic decreased [Unknown]
  - Productive cough [Recovered/Resolved]
  - Pneumonia [Recovered/Resolved]
  - Arthralgia [Not Recovered/Not Resolved]
  - Bronchitis [Recovered/Resolved]
  - Blood pressure fluctuation [Unknown]
  - Dizziness [Unknown]
  - Vein rupture [Unknown]
  - Balance disorder [Unknown]
  - Infection [Unknown]
  - Pharyngeal abscess [Recovered/Resolved]
  - Dyspnoea [Recovering/Resolving]
  - Arthralgia [Not Recovered/Not Resolved]
  - Erythema [Unknown]
  - Pain in extremity [Not Recovered/Not Resolved]
  - Off label use [Unknown]
  - Diarrhoea [Not Recovered/Not Resolved]
  - Oxygen saturation decreased [Unknown]
  - Diarrhoea [Unknown]
  - Blood pressure increased [Recovered/Resolved]
  - Nasopharyngitis [Unknown]
  - Hypotension [Unknown]
  - Pain [Unknown]
  - Exostosis [Not Recovered/Not Resolved]
  - Oropharyngeal pain [Recovered/Resolved]
  - Blood pressure systolic abnormal [Unknown]
  - Contusion [Not Recovered/Not Resolved]
  - Hypertension [Unknown]
  - Toothache [Not Recovered/Not Resolved]
  - Muscle spasms [Recovered/Resolved]
  - Cyst [Recovered/Resolved]
  - Dyspnoea [Unknown]
  - Anxiety [Unknown]
  - Skin papilloma [Recovering/Resolving]

NARRATIVE: CASE EVENT DATE: 20120903
